FAERS Safety Report 7712167 (Version 7)
Quarter: 2013Q4

REPORT INFORMATION
  Report Type: Report from Study
  Country: US (occurrence: US)
  Receive Date: 20101215
  Receipt Date: 20131101
  Transmission Date: 20140711
  Serious: Yes (Hospitalization, Other)
  Sender: FDA-Public Use
  Company Number: US-ACTELION-A-US2008-22829

PATIENT
  Age: 78 Year
  Sex: Female

DRUGS (29)
  1. TRACLEER [Suspect]
     Indication: PULMONARY ARTERIAL HYPERTENSION
     Dosage: 125 MG, BID
     Route: 048
     Dates: start: 200706
  2. REVATIO [Concomitant]
  3. ADVAIR [Concomitant]
  4. ASPIRIN [Concomitant]
  5. CALCIUM W/VITAMIN D [Concomitant]
  6. CHLOR-TRIMETON [Concomitant]
  7. FLUTICASONE PROPIONATE [Concomitant]
  8. GLUCOSAMINE W/CHONDROITIN SULFATE [Concomitant]
  9. METROGEL [Concomitant]
  10. MULTIVITAMIN [Concomitant]
  11. OMEPRAZOLE [Concomitant]
  12. SENOKOT [Concomitant]
  13. SLO-MAG [Concomitant]
  14. SPIRONOLACTONE [Concomitant]
  15. TORSEMIDE [Concomitant]
  16. ARMOUR THYROID [Concomitant]
  17. TYLENOL ARTHRITIS [Concomitant]
  18. VITAMIN B6 [Concomitant]
  19. COLACE [Concomitant]
  20. IPRATROPIUM [Concomitant]
  21. ALBUTEROL [Concomitant]
  22. WARFARIN [Concomitant]
  23. SOTALOL [Concomitant]
  24. NYSTATIN [Concomitant]
  25. K-DUR [Concomitant]
  26. CLINDAMYCIN [Concomitant]
  27. OXYGEN [Concomitant]
  28. BETAPACE [Concomitant]
  29. VIAGRA [Concomitant]

REACTIONS (27)
  - Pleural effusion [Unknown]
  - Aspiration pleural cavity [Unknown]
  - Pericardial effusion [Unknown]
  - Atrial fibrillation [Unknown]
  - Cardioversion [Unknown]
  - Cardiac pacemaker insertion [Unknown]
  - Cardiac disorder [Unknown]
  - Cellulitis [Unknown]
  - Limb injury [Unknown]
  - Atrial flutter [Unknown]
  - Costochondritis [Recovered/Resolved]
  - Chest pain [Recovered/Resolved]
  - Catheterisation cardiac [Recovered/Resolved]
  - Dialysis [Recovered/Resolved]
  - Debridement [Unknown]
  - Cardiac failure congestive [Unknown]
  - Fall [Unknown]
  - Spinal fracture [Unknown]
  - Weight decreased [Unknown]
  - Rib fracture [Unknown]
  - Vertigo [Unknown]
  - Labyrinthitis [Unknown]
  - Myopathy [Unknown]
  - Cerumen impaction [Unknown]
  - Cerumen removal [Unknown]
  - Arthritis [Unknown]
  - Lung disorder [Unknown]
